FAERS Safety Report 20045296 (Version 1)
Quarter: 2021Q4

REPORT INFORMATION
  Report Type: Spontaneous
  Country: US (occurrence: US)
  Receive Date: 20211108
  Receipt Date: 20211108
  Transmission Date: 20220303
  Serious: Yes (Other)
  Sender: FDA-Public Use
  Company Number: US-MEITHEAL-2021MPSPO00032

PATIENT

DRUGS (1)
  1. CISATRACURIUM BESYLATE [Suspect]
     Active Substance: CISATRACURIUM BESYLATE
     Indication: Product used for unknown indication
     Dosage: UNKNOWN

REACTIONS (5)
  - Paralysis [Unknown]
  - Wrong dose [Unknown]
  - Incorrect dose administered [Unknown]
  - Product quality issue [Unknown]
  - Product dosage form confusion [Unknown]
